FAERS Safety Report 9456435 (Version 1)
Quarter: 2013Q3

REPORT INFORMATION
  Report Type: Spontaneous
  Country: US (occurrence: US)
  Receive Date: 20130813
  Receipt Date: 20130813
  Transmission Date: 20140515
  Serious: No
  Sender: FDA-Public Use
  Company Number: US-BAYER-2013-097311

PATIENT
  Age: 77 Year
  Sex: Female

DRUGS (2)
  1. ESTRADIOL HEMIHYDRATE (PATCH) [Suspect]
     Indication: BLOOD DISORDER
     Dosage: 0.075 MG, QD
     Route: 062
  2. ESTRADIOL HEMIHYDRATE (PATCH) [Suspect]
     Indication: HOT FLUSH

REACTIONS (2)
  - Underdose [None]
  - Product adhesion issue [None]
